FAERS Safety Report 7085263-9 (Version None)
Quarter: 2010Q4

REPORT INFORMATION
  Report Type: 
  Country: None (occurrence: None)
  Receive Date: 20101028
  Receipt Date: 20101025
  Transmission Date: 20110411
  Serious: Yes (Life-Threatening, Hospitalization)
  Sender: FDA-Public Use
  Company Number: WAES 1010USA00539

PATIENT
  Age: 58 Year
  Sex: Female

DRUGS (4)
  1. JANUVIA [Suspect]
     Indication: TYPE 2 DIABETES MELLITUS
     Route: 048
     Dates: start: 20100224, end: 20100907
  2. EGILOK [Concomitant]
  3. AMLODIPINE [Concomitant]
  4. ENALAPRIL MALEATE [Concomitant]

REACTIONS (3)
  - METASTASES TO LYMPH NODES [None]
  - PYELONEPHRITIS [None]
  - UTERINE CANCER [None]
